FAERS Safety Report 24799501 (Version 1)
Quarter: 2024Q4

REPORT INFORMATION
  Report Type: Spontaneous
  Country: US (occurrence: None)
  Receive Date: 20241231
  Receipt Date: 20241231
  Transmission Date: 20250115
  Serious: No
  Sender: Public
  Company Number: None

PATIENT
  Sex: Female

DRUGS (1)
  1. TALTZ [Suspect]
     Active Substance: IXEKIZUMAB
     Indication: Psoriatic arthropathy
     Dosage: 1 PEN EVERT 4 WEEKS SUBCUTANEOUS?
     Route: 058
     Dates: start: 20241218

REACTIONS (2)
  - Therapeutic product effect incomplete [None]
  - Therapy change [None]
